FAERS Safety Report 4951696-7 (Version None)
Quarter: 2006Q1

REPORT INFORMATION
  Report Type: 
  Country: None (occurrence: None)
  Receive Date: 20060322
  Receipt Date: 20060322
  Transmission Date: 20060701
  Serious: Yes (Hospitalization, Disabling)
  Sender: FDA-Public Use
  Company Number: None

PATIENT
  Age: 43 Year
  Sex: Female
  Weight: 57.1532 kg

DRUGS (11)
  1. PREDNISONE [Suspect]
     Indication: SYSTEMIC LUPUS ERYTHEMATOSUS
     Dosage: 10 MG DAILY PO
     Route: 048
  2. HYDROXYCHLOROQUINE SULFATE [Concomitant]
  3. MYCOPHENOLATE [Concomitant]
  4. ATENOLOL [Concomitant]
  5. AMLODIPINE [Concomitant]
  6. LANSOPRAZOLE [Concomitant]
  7. ASPIRIN [Concomitant]
  8. VENLAFAXINE HCL [Concomitant]
  9. LEVETRIACETAM [Concomitant]
  10. TRAZADONE [Concomitant]
  11. RISDRONATE SODIUM [Concomitant]

REACTIONS (1)
  - OSTEONECROSIS [None]
